FAERS Safety Report 8472347-3 (Version None)
Quarter: 2012Q2

REPORT INFORMATION
  Report Type: 
  Country: None (occurrence: None)
  Receive Date: 20120627
  Receipt Date: 20120618
  Transmission Date: 20120825
  Serious: Yes (Hospitalization)
  Sender: FDA-Public Use
  Company Number: US-ACTELION-A-NJ2011-49701

PATIENT

DRUGS (4)
  1. ASPIRIN [Concomitant]
  2. PLAVIX [Concomitant]
  3. TRACLEER [Suspect]
     Indication: PULMONARY ARTERIAL HYPERTENSION
     Dosage: UNK
     Route: 048
     Dates: start: 20090603
  4. DIGOXIN [Concomitant]

REACTIONS (8)
  - RENAL FAILURE [None]
  - ANAEMIA [None]
  - CARDIAC FAILURE CONGESTIVE [None]
  - INFECTION [None]
  - FLUID RETENTION [None]
  - DIALYSIS [None]
  - FLUSHING [None]
  - DYSPNOEA [None]
